FAERS Safety Report 8162449-3 (Version None)
Quarter: 2012Q1

REPORT INFORMATION
  Report Type: 
  Country: None (occurrence: None)
  Receive Date: 20120221
  Receipt Date: 20120213
  Transmission Date: 20120608
  Serious: Yes (Other)
  Sender: FDA-Public Use
  Company Number: 100026098

PATIENT
  Age: 46 Year
  Sex: Male

DRUGS (15)
  1. IRON (IRON) (IRON) [Concomitant]
  2. GABAPENTIN [Concomitant]
  3. INSULIN (INSULIN) (INSULIN) [Concomitant]
  4. OMEPRAZOLE [Concomitant]
  5. PROPRANOLOL [Concomitant]
  6. BACLOFEN (BACLOFENQ)(BACLOFEN) [Concomitant]
  7. MVI (MVI) (MVI) [Concomitant]
  8. RIFAMPIN (RIFAMPICIN)(RIFAMPICIN) [Concomitant]
  9. FLUOXETINE [Concomitant]
  10. LISINOPRIL [Concomitant]
  11. DALTEPARIN (DALTEPARIN)(DALTEPARIN) [Concomitant]
  12. TEFLARO [Suspect]
     Indication: OSTEOMYELITIS
     Dosage: 600 MG EVERY 12 HOURS (600 MG,EVERY 12 HOURS),INTRAVENOUS (NOT OTHERWISE SPECIFIED)
     Route: 042
     Dates: start: 20110319, end: 20110422
  13. TEFLARO [Suspect]
     Indication: STAPHYLOCOCCAL INFECTION
     Dosage: 600 MG EVERY 12 HOURS (600 MG,EVERY 12 HOURS),INTRAVENOUS (NOT OTHERWISE SPECIFIED)
     Route: 042
     Dates: start: 20110319, end: 20110422
  14. MORPHINE [Concomitant]
  15. SENNA (SENNA) ( SENNA) [Concomitant]

REACTIONS (2)
  - PANCYTOPENIA [None]
  - OFF LABEL USE [None]
